FAERS Safety Report 6159469-7 (Version None)
Quarter: 2009Q2

REPORT INFORMATION
  Report Type: 
  Country: None (occurrence: None)
  Receive Date: 20090417
  Receipt Date: 20090403
  Transmission Date: 20091009
  Serious: Yes (Hospitalization)
  Sender: FDA-Public Use
  Company Number: ZA-GENENTECH-280491

PATIENT
  Sex: Female

DRUGS (4)
  1. MABTHERA [Suspect]
     Indication: LUPUS NEPHRITIS
     Dosage: 500 MG, UNK
     Route: 042
     Dates: start: 20060922
  2. CYCLOPHOSPHAMIDE [Concomitant]
     Indication: DRUG USE FOR UNKNOWN INDICATION
  3. MYCOPHENOLATE MOFETIL [Concomitant]
     Indication: DRUG USE FOR UNKNOWN INDICATION
  4. STEROIDS (UNK INGREDIENTS) [Concomitant]
     Indication: DRUG USE FOR UNKNOWN INDICATION

REACTIONS (1)
  - PERITONEAL TUBERCULOSIS [None]
